FAERS Safety Report 7563374-9 (Version None)
Quarter: 2011Q2

REPORT INFORMATION
  Report Type: 
  Country: None (occurrence: None)
  Receive Date: 20110622
  Receipt Date: 20110615
  Transmission Date: 20111010
  Serious: Yes (Death)
  Sender: FDA-Public Use
  Company Number: A0931624A

PATIENT
  Age: 69 Year
  Sex: Male

DRUGS (9)
  1. COMBIVENT [Concomitant]
  2. THEOPHYLLINE [Concomitant]
  3. ASTHAVENT [Concomitant]
  4. ATENOLOL [Concomitant]
  5. ADVAIR DISKUS 100/50 [Suspect]
     Indication: EMPHYSEMA
     Dosage: 1PUFF TWICE PER DAY
     Route: 055
  6. XANAX [Concomitant]
  7. ASPIRIN [Concomitant]
  8. PRILOSEC [Concomitant]
  9. HYDROCHLOROTHIAZIDE [Concomitant]

REACTIONS (1)
  - DEATH [None]
